FAERS Safety Report 24316322 (Version 1)
Quarter: 2024Q3

REPORT INFORMATION
  Report Type: Spontaneous
  Country: US (occurrence: US)
  Receive Date: 20240913
  Receipt Date: 20240913
  Transmission Date: 20241017
  Serious: Yes (Death, Other)
  Sender: BRISTOL MYERS SQUIBB
  Company Number: US-BRISTOL-MYERS SQUIBB COMPANY-2024-145859

PATIENT
  Age: 84 Year
  Sex: Male

DRUGS (2)
  1. OPDUALAG [Suspect]
     Active Substance: NIVOLUMAB\RELATLIMAB
     Indication: Gastric cancer
     Dosage: STRENGTH: 80MG-240MG VIAL. DOSE: 160MG-480MG. ROUTE WAS REPORTED AS INFUSION.
  2. OPDUALAG [Suspect]
     Active Substance: NIVOLUMAB\RELATLIMAB
     Dosage: STRENGTH: 80MG-240MG VIAL. DOSE: 160MG-480MG. ROUTE WAS REPORTED AS INFUSION.

REACTIONS (2)
  - Death [Fatal]
  - Off label use [Unknown]

NARRATIVE: CASE EVENT DATE: 20240802
